FAERS Safety Report 6980491-2 (Version None)
Quarter: 2010Q3

REPORT INFORMATION
  Report Type: 
  Country: None (occurrence: None)
  Receive Date: 20100914
  Receipt Date: 20100831
  Transmission Date: 20110219
  Serious: Yes (Other)
  Sender: FDA-Public Use
  Company Number: PHHY2010US53229

PATIENT
  Sex: Female
  Weight: 82.993 kg

DRUGS (21)
  1. RECLAST [Suspect]
     Indication: OSTEOPOROSIS POSTMENOPAUSAL
     Dosage: 5 MG/100ML
     Route: 042
     Dates: start: 20090401
  2. MAGNESIUM OXIDE [Concomitant]
     Dosage: 400MG BID
     Route: 048
  3. ONDANSETRON [Concomitant]
     Dosage: 4MG TID
     Route: 048
  4. POTASSIUM CHLORIDE [Concomitant]
     Dosage: 20 MEQ BID
     Route: 048
  5. FUROSEMIDE [Concomitant]
     Dosage: 40MG BID
     Route: 048
  6. OXYCODONE [Concomitant]
     Dosage: 10MG Q12HOURS
     Route: 048
  7. LIDOCAINE [Concomitant]
     Dosage: 3 PATCH TOPICALLY QDAY
  8. ALBUTEROL [Concomitant]
  9. MOMETASONE FUROATE [Concomitant]
     Route: 045
  10. SUMATRIPTAN [Concomitant]
  11. ESOMEPRAZOLE MAGNESIUM [Concomitant]
     Dosage: 40MG QDAY
     Route: 048
  12. LIPITOR [Concomitant]
     Dosage: 40MG QDAY
     Route: 048
  13. METOPROLOL TARTRATE [Concomitant]
     Dosage: 25MG QDAY
     Route: 048
  14. APAP TAB [Concomitant]
     Dosage: 1 TAB BID PRN
     Route: 048
  15. DOCUSATE [Concomitant]
     Dosage: 100MG BID
     Route: 048
  16. OLOPATADINE [Concomitant]
     Dosage: 1 DROP BOTH EYES BID
     Route: 047
  17. LEVOTHYROXINE SODIUM [Concomitant]
     Dosage: 150MCG QDAY
     Route: 048
  18. TIZANIDINE HCL [Concomitant]
     Dosage: 1 TO 2 TABLETS
     Route: 048
  19. DULOXETINE [Concomitant]
     Dosage: 60MG QDAY
     Route: 048
  20. TRAZODONE HCL [Concomitant]
     Dosage: 200MG BEDTIME
     Route: 048
  21. CLONAZEPAM [Concomitant]
     Dosage: 1MG TID
     Route: 048

REACTIONS (6)
  - ASTHMA [None]
  - CARDIOSPASM [None]
  - CHEST DISCOMFORT [None]
  - COSTOCHONDRITIS [None]
  - HYPOKINESIA [None]
  - INFLUENZA LIKE ILLNESS [None]
